FAERS Safety Report 13989272 (Version 2)
Quarter: 2017Q4

REPORT INFORMATION
  Report Type: Spontaneous
  Country: JP (occurrence: JP)
  Receive Date: 20170920
  Receipt Date: 20171018
  Transmission Date: 20180321
  Serious: Yes (Other)
  Sender: FDA-Public Use
  Company Number: JP-CONCORDIA PHARMACEUTICALS INC.-E2B_00008379

PATIENT
  Age: 84 Year
  Sex: Male

DRUGS (5)
  1. PREDNISOLONE. [Suspect]
     Active Substance: PREDNISOLONE
     Indication: DIFFUSE LARGE B-CELL LYMPHOMA STAGE III
     Dosage: ON DAYS 1-5, ON A 21 DAY SCHEDULE AND THE PATIENT RECEIVED A TOAL OF 7 CYCLES OF DOSE-REDUCED R-CHOP
     Route: 048
  2. CYCLOPHOSPHAMIDE. [Suspect]
     Active Substance: CYCLOPHOSPHAMIDE
     Indication: DIFFUSE LARGE B-CELL LYMPHOMA STAGE III
     Dosage: ON DAYS 1-5, ON A 21 DAY SCHEDULE AND THE PATIENT RECEIVED A TOAL OF 7 CYCLES OF DOSE-REDUCED R-CHOP
  3. DOXORUBICIN [Suspect]
     Active Substance: DOXORUBICIN
     Indication: DIFFUSE LARGE B-CELL LYMPHOMA STAGE III
     Dosage: ON DAYS 1-5, ON A 21 DAY SCHEDULE AND THE PATIENT RECEIVED A TOAL OF 7 CYCLES OF DOSE-REDUCED R-CHOP
  4. RITUXIMAB. [Suspect]
     Active Substance: RITUXIMAB
     Indication: DIFFUSE LARGE B-CELL LYMPHOMA STAGE III
     Dosage: ON DAYS 1-5, ON A 21 DAY SCHEDULE AND THE PATIENT RECEIVED A TOAL OF 7 CYCLES OF DOSE-REDUCED R-CHOP
  5. VINCRISTINE [Suspect]
     Active Substance: VINCRISTINE
     Indication: DIFFUSE LARGE B-CELL LYMPHOMA STAGE III
     Dosage: ON DAYS 1-5, ON A 21 DAY SCHEDULE AND THE PATIENT RECEIVED A TOAL OF 7 CYCLES OF DOSE-REDUCED R-CHOP

REACTIONS (3)
  - Kaposi^s sarcoma [Recovered/Resolved]
  - Cytomegalovirus viraemia [Unknown]
  - Pneumonia bacterial [Recovered/Resolved]
